FAERS Safety Report 15518297 (Version 1)
Quarter: 2018Q4

REPORT INFORMATION
  Report Type: Spontaneous
  Country: US (occurrence: US)
  Receive Date: 20181017
  Receipt Date: 20181017
  Transmission Date: 20190205
  Serious: Yes (Other)
  Sender: FDA-Public Use
  Company Number: US-SUPERNUS PHARMACEUTICALS, INC.-2018SUP00286

PATIENT
  Age: 53 Year
  Sex: Female
  Weight: 42.18 kg

DRUGS (2)
  1. TROKENDI XR [Suspect]
     Active Substance: TOPIRAMATE
     Indication: SEIZURE
     Dosage: 200 MG, 1X/DAY
     Route: 048
     Dates: start: 201809, end: 201809
  2. UNSPECIFIED MEDICATIONS [Concomitant]
     Active Substance: UNSPECIFIED INGREDIENT

REACTIONS (15)
  - Seizure [Recovering/Resolving]
  - Oxygen saturation decreased [Recovering/Resolving]
  - Balance disorder [Recovering/Resolving]
  - Coordination abnormal [Recovering/Resolving]
  - Dehydration [Recovering/Resolving]
  - Fall [Recovering/Resolving]
  - Confusional state [Recovering/Resolving]
  - Hypersensitivity [Recovering/Resolving]
  - Drug ineffective [Not Recovered/Not Resolved]
  - Dizziness [Recovering/Resolving]
  - Amnesia [Recovering/Resolving]
  - Drug withdrawal convulsions [Recovering/Resolving]
  - Somnolence [Recovering/Resolving]
  - Blood pressure decreased [Recovering/Resolving]
  - Abdominal discomfort [Recovering/Resolving]

NARRATIVE: CASE EVENT DATE: 201809
